FAERS Safety Report 9204909 (Version 2)
Quarter: 2013Q2

REPORT INFORMATION
  Report Type: Spontaneous
  Country: TR (occurrence: TR)
  Receive Date: 20130402
  Receipt Date: 20130624
  Transmission Date: 20140414
  Serious: Yes (Other)
  Sender: FDA-Public Use
  Company Number: PHHY2013TR029980

PATIENT
  Age: 56 Year
  Sex: Female

DRUGS (9)
  1. ACETYLSALICYLIC ACID [Suspect]
     Indication: CORONARY ARTERY DISEASE
  2. ENOXAPARIN [Suspect]
     Route: 058
  3. CLOPIDOGREL [Suspect]
  4. PERINDOPRIL [Suspect]
  5. ATORVASTATIN [Concomitant]
  6. METOPROLOL [Concomitant]
     Indication: CORONARY ARTERY DISEASE
  7. ISOSORBIDE MONONITE [Concomitant]
     Indication: CORONARY ARTERY DISEASE
  8. NITROGLYCERIN [Concomitant]
  9. AMLODIPINE [Concomitant]

REACTIONS (4)
  - Abdominal wall haematoma [Recovered/Resolved]
  - Abdominal pain [Recovered/Resolved]
  - Abdominal mass [Recovered/Resolved]
  - Cough [Recovered/Resolved]
